FAERS Safety Report 25870448 (Version 2)
Quarter: 2025Q4

REPORT INFORMATION
  Report Type: Report from Study
  Country: US (occurrence: US)
  Receive Date: 20251001
  Receipt Date: 20251008
  Transmission Date: 20260118
  Serious: Yes (Other)
  Sender: ABBVIE
  Company Number: US-ABBVIE-6481221

PATIENT
  Age: 36 Year
  Sex: Female

DRUGS (1)
  1. RINVOQ [Suspect]
     Active Substance: UPADACITINIB
     Indication: Crohn^s disease
     Dosage: FORM STRENGTH: 30 MILLIGRAM
     Route: 048
     Dates: start: 20241107, end: 20250909

REACTIONS (9)
  - Compartment syndrome [Not Recovered/Not Resolved]
  - Anaemia [Unknown]
  - Localised oedema [Not Recovered/Not Resolved]
  - Small intestinal haemorrhage [Unknown]
  - Protein total decreased [Not Recovered/Not Resolved]
  - Vein disorder [Unknown]
  - Peripheral swelling [Unknown]
  - Crohn^s disease [Not Recovered/Not Resolved]
  - Diarrhoea [Recovering/Resolving]

NARRATIVE: CASE EVENT DATE: 20250601
